FAERS Safety Report 5410802-0 (Version None)
Quarter: 2007Q3

REPORT INFORMATION
  Report Type: 
  Country: None (occurrence: None)
  Receive Date: 20070810
  Receipt Date: 20070606
  Transmission Date: 20080115
  Serious: No
  Sender: FDA-Public Use
  Company Number: A0654438A

PATIENT
  Age: 56 Year
  Sex: Female

DRUGS (4)
  1. PAXIL CR [Suspect]
     Indication: DRUG USE FOR UNKNOWN INDICATION
     Dosage: 25MG PER DAY
     Route: 048
     Dates: end: 20070601
  2. MULTI-VITAMIN [Concomitant]
  3. CALCIUM CHLORIDE [Concomitant]
  4. ASPIRIN [Concomitant]

REACTIONS (5)
  - ABNORMAL DREAMS [None]
  - ABNORMAL SENSATION IN EYE [None]
  - DIZZINESS [None]
  - PARAESTHESIA [None]
  - STOMACH DISCOMFORT [None]
